FAERS Safety Report 21881145 (Version 3)
Quarter: 2023Q1

REPORT INFORMATION
  Report Type: Spontaneous
  Country: ZA (occurrence: None)
  Receive Date: 20230118
  Receipt Date: 20230208
  Transmission Date: 20230418
  Serious: Yes (Death, Other)
  Sender: FDA-Public Use
  Company Number: ZA-ROCHE-3266376

PATIENT
  Sex: Female

DRUGS (2)
  1. PERJETA [Suspect]
     Active Substance: PERTUZUMAB
     Indication: Breast cancer metastatic
     Dosage: 420MG/14ML. SHE RECEIVED 24 CYCLES OF PERJETA.  LAST DATE OF INFUSION WAS ON 14/DEC/2022.
     Route: 042
     Dates: start: 20210812
  2. KADCYLA [Suspect]
     Active Substance: ADO-TRASTUZUMAB EMTANSINE
     Indication: Breast cancer metastatic
     Dosage: LAST KADCYLA INFUSION WAS ON 26/JAN/2023 AT 10 HR 15 MIN.
     Route: 042
     Dates: start: 20230105

REACTIONS (3)
  - Disease progression [Unknown]
  - Cardiac arrest [Fatal]
  - Ventricular fibrillation [Fatal]

NARRATIVE: CASE EVENT DATE: 20230129
